FAERS Safety Report 6115310-X (Version None)
Quarter: 2009Q1

REPORT INFORMATION
  Report Type: 
  Country: None (occurrence: None)
  Receive Date: 20090313
  Receipt Date: 20090310
  Transmission Date: 20090719
  Serious: Yes (Hospitalization)
  Sender: FDA-Public Use
  Company Number: FR-ROCHE-620950

PATIENT
  Sex: Female

DRUGS (5)
  1. VALIUM [Suspect]
     Indication: DRUG USE FOR UNKNOWN INDICATION
     Route: 048
  2. VALIUM [Suspect]
     Dosage: 5 MG IN THE MORNING AND 10 MG IN THE EVENING.
     Route: 048
     Dates: start: 20090202
  3. VALIUM [Suspect]
     Dosage: FREQUENCY : ONCE DOSE : 10 TABLETS
     Route: 048
     Dates: start: 20090209, end: 20090209
  4. LAROXYL [Concomitant]
     Route: 048
  5. HALDOL [Concomitant]
     Route: 048

REACTIONS (1)
  - FOETAL HYPOKINESIA [None]
